FAERS Safety Report 7990708-3 (Version None)
Quarter: 2011Q4

REPORT INFORMATION
  Report Type: 
  Country: None (occurrence: None)
  Receive Date: 20111219
  Receipt Date: 20111219
  Transmission Date: 20120403
  Serious: No
  Sender: FDA-Public Use
  Company Number: None

PATIENT
  Age: 78 Year
  Sex: Male
  Weight: 90.718 kg

DRUGS (1)
  1. VALACYCLOVIR GENERIC [Suspect]
     Indication: HERPES ZOSTER
     Dosage: 1000 MG
     Route: 048
     Dates: start: 20111206, end: 20111212

REACTIONS (4)
  - HERPES ZOSTER [None]
  - DISEASE RECURRENCE [None]
  - HEADACHE [None]
  - PRODUCT SUBSTITUTION ISSUE [None]
